FAERS Safety Report 7811862-X (Version None)
Quarter: 2011Q4

REPORT INFORMATION
  Report Type: 
  Country: None (occurrence: None)
  Receive Date: 20111013
  Receipt Date: 20110928
  Transmission Date: 20120403
  Serious: Yes (Other)
  Sender: FDA-Public Use
  Company Number: PHHY2011BR88379

PATIENT
  Age: 72 Year
  Sex: Female

DRUGS (5)
  1. ALLOPURINOL [Concomitant]
  2. ASPIRIN [Concomitant]
     Dosage: 100 MG, PER DAY
  3. DIOVAN HCT [Suspect]
  4. DIABINESE [Concomitant]
     Dosage: 125 MG, PER DAY
  5. LESCOL [Concomitant]
     Dosage: 80 MG, PER DAY

REACTIONS (9)
  - LEFT VENTRICULAR FAILURE [None]
  - STRESS CARDIOMYOPATHY [None]
  - PHOSPHORUS METABOLISM DISORDER [None]
  - GLYCOSYLATED HAEMOGLOBIN INCREASED [None]
  - HYPOGLYCAEMIA [None]
  - RENAL IMPAIRMENT [None]
  - RENAL FAILURE [None]
  - CALCIUM METABOLISM DISORDER [None]
  - RESPIRATORY FAILURE [None]
